FAERS Safety Report 18153537 (Version 1)
Quarter: 2020Q3

REPORT INFORMATION
  Report Type: Report from Study
  Country: BR (occurrence: BR)
  Receive Date: 20200816
  Receipt Date: 20200816
  Transmission Date: 20201103
  Serious: Yes (Other)
  Sender: FDA-Public Use
  Company Number: NVSC2020BR224598

PATIENT
  Sex: Male

DRUGS (2)
  1. GALVUS MET [Suspect]
     Active Substance: METFORMIN HYDROCHLORIDE\VILDAGLIPTIN
     Indication: DIABETES MELLITUS
     Dosage: UNK
     Route: 065
  2. TRAMADOL. [Suspect]
     Active Substance: TRAMADOL
     Indication: SPINE MALFORMATION
     Dosage: UNK (2 YEARS AGO)
     Route: 065

REACTIONS (4)
  - Intervertebral disc protrusion [Unknown]
  - Diabetes mellitus [Unknown]
  - Blindness [Unknown]
  - Sneezing [Unknown]
